FAERS Safety Report 18713096 (Version 1)
Quarter: 2021Q1

REPORT INFORMATION
  Report Type: Report from Study
  Country: SI (occurrence: SI)
  Receive Date: 20210107
  Receipt Date: 20210107
  Transmission Date: 20210419
  Serious: Yes (Hospitalization, Other)
  Sender: FDA-Public Use
  Company Number: SI-SA-BMS14688873

PATIENT

DRUGS (5)
  1. METHYLDOPA. [Suspect]
     Active Substance: METHYLDOPA
     Dosage: 3?250 MG/D
  2. METHYLDOPA. [Suspect]
     Active Substance: METHYLDOPA
     Dosage: 4?500MG/D
  3. METHYLDOPA. [Suspect]
     Active Substance: METHYLDOPA
     Dosage: 4? 500MG/D
  4. LYSINE ACETYLSALICYLATE [Suspect]
     Active Substance: ASPIRIN DL-LYSINE
     Dosage: 100 MG, QD
  5. IRBESARTAN. [Suspect]
     Active Substance: IRBESARTAN
     Indication: HYPERTENSION
     Dosage: 300 MG, QD

REACTIONS (3)
  - Oligohydramnios [Recovered/Resolved]
  - Pre-eclampsia [Recovered/Resolved]
  - Exposure during pregnancy [Recovered/Resolved]
